FAERS Safety Report 10184952 (Version 1)
Quarter: 2014Q2

REPORT INFORMATION
  Report Type: Spontaneous
  Country: US (occurrence: US)
  Receive Date: 20140521
  Receipt Date: 20140521
  Transmission Date: 20141212
  Serious: No
  Sender: FDA-Public Use
  Company Number: US-009507513-1405USA004521

PATIENT
  Age: 41 Year
  Sex: Female
  Weight: 56.24 kg

DRUGS (5)
  1. NUVARING [Suspect]
     Indication: MENSTRUAL CYCLE MANAGEMENT
     Dosage: DOSE/FREQUENCY- 9 WEEKS IN 1 WEEK OUT
     Route: 067
     Dates: start: 201401
  2. TOPAMAX [Concomitant]
  3. CYPROHEPTADINE HYDROCHLORIDE [Concomitant]
  4. HALOPERIDOL [Concomitant]
     Dosage: UNK, PRN
  5. TRANSDERM SCOP [Concomitant]
     Dosage: UNK, PRN

REACTIONS (5)
  - Vaginal discharge [Unknown]
  - Vulvovaginal pain [Unknown]
  - Incorrect drug administration duration [Unknown]
  - Back pain [Unknown]
  - Off label use [Unknown]
